FAERS Safety Report 24047441 (Version 3)
Quarter: 2024Q4

REPORT INFORMATION
  Report Type: Spontaneous
  Country: JP (occurrence: JP)
  Receive Date: 20240703
  Receipt Date: 20241205
  Transmission Date: 20250114
  Serious: Yes (Other)
  Sender: ALEXION PHARMACEUTICALS
  Company Number: 2024A135826

PATIENT
  Age: 66 Year

DRUGS (32)
  1. FASENRA [Suspect]
     Active Substance: BENRALIZUMAB
     Indication: Asthma
     Dosage: DOSE UNKNOWN, FREQUENCY: UNK
  2. FASENRA [Suspect]
     Active Substance: BENRALIZUMAB
     Dosage: DOSE UNKNOWN, FREQUENCY: UNK
  3. FASENRA [Suspect]
     Active Substance: BENRALIZUMAB
     Dosage: DOSE UNKNOWN, FREQUENCY: UNK
  4. FASENRA [Suspect]
     Active Substance: BENRALIZUMAB
     Dosage: DOSE UNKNOWN, FREQUENCY: UNK
  5. TRELEGY ELLIPTA [Concomitant]
     Active Substance: FLUTICASONE FUROATE\UMECLIDINIUM BROMIDE\VILANTEROL TRIFENATATE
     Indication: Product used for unknown indication
     Dosage: DOSE UNKNOWN
  6. TRELEGY ELLIPTA [Concomitant]
     Active Substance: FLUTICASONE FUROATE\UMECLIDINIUM BROMIDE\VILANTEROL TRIFENATATE
     Dosage: DOSE UNKNOWN
     Route: 065
  7. TRELEGY ELLIPTA [Concomitant]
     Active Substance: FLUTICASONE FUROATE\UMECLIDINIUM BROMIDE\VILANTEROL TRIFENATATE
     Dosage: DOSE UNKNOWN
     Route: 065
  8. TRELEGY ELLIPTA [Concomitant]
     Active Substance: FLUTICASONE FUROATE\UMECLIDINIUM BROMIDE\VILANTEROL TRIFENATATE
     Dosage: DOSE UNKNOWN
  9. TRELEGY ELLIPTA [Concomitant]
     Active Substance: FLUTICASONE FUROATE\UMECLIDINIUM BROMIDE\VILANTEROL TRIFENATATE
     Dosage: DOSE UNKNOWN
  10. TRELEGY ELLIPTA [Concomitant]
     Active Substance: FLUTICASONE FUROATE\UMECLIDINIUM BROMIDE\VILANTEROL TRIFENATATE
     Dosage: DOSE UNKNOWN
     Route: 065
  11. MONTELUKAST [Concomitant]
     Active Substance: MONTELUKAST
     Indication: Product used for unknown indication
     Dosage: DOSE UNKNOWN
  12. MONTELUKAST [Concomitant]
     Active Substance: MONTELUKAST
     Dosage: DOSE UNKNOWN
     Route: 065
  13. MONTELUKAST [Concomitant]
     Active Substance: MONTELUKAST
  14. MONTELUKAST [Concomitant]
     Active Substance: MONTELUKAST
  15. MONTELUKAST [Concomitant]
     Active Substance: MONTELUKAST
  16. MONTELUKAST [Concomitant]
     Active Substance: MONTELUKAST
  17. OLOPATADINE HYDROCHLORIDE [Concomitant]
     Active Substance: OLOPATADINE HYDROCHLORIDE
     Indication: Product used for unknown indication
  18. OLOPATADINE HYDROCHLORIDE [Concomitant]
     Active Substance: OLOPATADINE HYDROCHLORIDE
  19. OLOPATADINE HYDROCHLORIDE [Concomitant]
     Active Substance: OLOPATADINE HYDROCHLORIDE
  20. OLOPATADINE HYDROCHLORIDE [Concomitant]
     Active Substance: OLOPATADINE HYDROCHLORIDE
  21. ERYTHROCIN [Concomitant]
     Active Substance: ERYTHROMYCIN LACTOBIONATE
     Indication: Product used for unknown indication
  22. ERYTHROCIN [Concomitant]
     Active Substance: ERYTHROMYCIN LACTOBIONATE
  23. ERYTHROCIN [Concomitant]
     Active Substance: ERYTHROMYCIN LACTOBIONATE
  24. ERYTHROCIN [Concomitant]
     Active Substance: ERYTHROMYCIN LACTOBIONATE
  25. CARBOCYSTEINE [Concomitant]
     Active Substance: CARBOCYSTEINE
     Indication: Product used for unknown indication
  26. CARBOCYSTEINE [Concomitant]
     Active Substance: CARBOCYSTEINE
  27. CARBOCYSTEINE [Concomitant]
     Active Substance: CARBOCYSTEINE
  28. CARBOCYSTEINE [Concomitant]
     Active Substance: CARBOCYSTEINE
  29. Budeforu [Concomitant]
  30. Budeforu [Concomitant]
  31. Budeforu [Concomitant]
  32. Budeforu [Concomitant]

REACTIONS (2)
  - Organising pneumonia [Recovering/Resolving]
  - Rhinorrhoea [Recovering/Resolving]
